FAERS Safety Report 5161160-0 (Version None)
Quarter: 2006Q4

REPORT INFORMATION
  Report Type: 
  Country: None (occurrence: None)
  Receive Date: 20061130
  Receipt Date: 20051220
  Transmission Date: 20070319
  Serious: No
  Sender: FDA-Public Use
  Company Number: US-BRISTOL-MYERS SQUIBB COMPANY-13224902

PATIENT
  Age: 65 Year
  Sex: Female
  Weight: 48 kg

DRUGS (6)
  1. QUESTRAN LIGHT [Suspect]
     Indication: HYPERCHOLESTEROLAEMIA
     Dosage: DOSAGE FORM = SCOOPFUL
     Route: 048
     Dates: start: 20051103, end: 20051217
  2. PROTONIX [Concomitant]
  3. SUCRALFATE [Concomitant]
  4. LIPITOR [Concomitant]
  5. AMBIEN [Concomitant]
  6. COREG [Concomitant]

REACTIONS (3)
  - LEUKOPLAKIA ORAL [None]
  - ORAL DISCOMFORT [None]
  - ORAL PAIN [None]
